FAERS Safety Report 23255716 (Version 2)
Quarter: 2023Q4

REPORT INFORMATION
  Report Type: Report from Study
  Country: NL (occurrence: NL)
  Receive Date: 20231204
  Receipt Date: 20231221
  Transmission Date: 20240110
  Serious: Yes (Death, Hospitalization)
  Sender: FDA-Public Use
  Company Number: NL-ABBVIE-5522367

PATIENT
  Age: 66 Year
  Sex: Male

DRUGS (5)
  1. CARBIDOPA\LEVODOPA [Suspect]
     Active Substance: CARBIDOPA\LEVODOPA
     Indication: Parkinson^s disease
     Dosage: MD: 5.7ML/H CD; 4.4ML/H; ED: 3.2ML/H  CND; 3.2ML/H/REMAINS AT 24 HOURS
     Route: 050
     Dates: start: 20230711, end: 20230823
  2. CARBIDOPA\LEVODOPA [Suspect]
     Active Substance: CARBIDOPA\LEVODOPA
     Dosage: MD: 5.8ML/H CD; 4.5ML/H; ED: 3.2ML/H CND; 3.2ML/H/REMAINS AT 24 HOURS
     Route: 050
     Dates: start: 20230823, end: 20231128
  3. CARBIDOPA\LEVODOPA [Suspect]
     Active Substance: CARBIDOPA\LEVODOPA
     Dosage: MD: 5.7ML/H CD; 4.4ML/H; ED: 3.2ML/H  CND; 3.2ML/H/REMAINS AT 24 HOURS
     Route: 050
     Dates: start: 20230322, end: 20230711
  4. CLOZAPINE [Concomitant]
     Active Substance: CLOZAPINE
     Indication: Product used for unknown indication
  5. EXELON [Concomitant]
     Active Substance: RIVASTIGMINE TARTRATE
     Indication: Product used for unknown indication

REACTIONS (2)
  - Pneumonia [Fatal]
  - COVID-19 [Fatal]

NARRATIVE: CASE EVENT DATE: 20230101
